FAERS Safety Report 18942310 (Version 4)
Quarter: 2021Q4

REPORT INFORMATION
  Report Type: Spontaneous
  Country: US (occurrence: US)
  Receive Date: 20210225
  Receipt Date: 20211109
  Transmission Date: 20220303
  Serious: Yes (Other)
  Sender: FDA-Public Use
  Company Number: US-PFIZER INC-2021201194

PATIENT
  Sex: Male
  Weight: 72.57 kg

DRUGS (3)
  1. DILANTIN [Suspect]
     Active Substance: PHENYTOIN
     Indication: Generalised tonic-clonic seizure
     Dosage: 200 MG, DAILY
     Route: 048
     Dates: start: 19980622, end: 2018
  2. DILANTIN [Suspect]
     Active Substance: PHENYTOIN
     Indication: Epilepsy
     Dosage: UNK
     Dates: start: 1990, end: 2019
  3. DILANTIN [Suspect]
     Active Substance: PHENYTOIN
     Dosage: UNK, DAILY (2 OR 3 EVERY NIGHT)
     Dates: start: 1990, end: 2015

REACTIONS (25)
  - Cerebellar atrophy [Unknown]
  - Cerebral atrophy [Unknown]
  - Liver injury [Unknown]
  - Irritability [Unknown]
  - Anxiety [Unknown]
  - Somnolence [Unknown]
  - Panic attack [Unknown]
  - Amnesia [Unknown]
  - Aggression [Unknown]
  - Fall [Unknown]
  - Hepatic enzyme increased [Unknown]
  - Swelling face [Unknown]
  - Periorbital swelling [Unknown]
  - Agitation [Unknown]
  - Restlessness [Unknown]
  - Obsessive-compulsive disorder [Unknown]
  - Abdominal distension [Unknown]
  - Asthenia [Unknown]
  - Fatigue [Unknown]
  - Coordination abnormal [Unknown]
  - Sleep disorder [Unknown]
  - Tongue biting [Unknown]
  - Urinary incontinence [Unknown]
  - Confusional state [Unknown]
  - Memory impairment [Not Recovered/Not Resolved]
